FAERS Safety Report 5895053-8 (Version None)
Quarter: 2008Q3

REPORT INFORMATION
  Report Type: 
  Country: None (occurrence: None)
  Receive Date: 20080922
  Receipt Date: 20080911
  Transmission Date: 20090109
  Serious: Yes (Hospitalization)
  Sender: FDA-Public Use
  Company Number: CHNY2008FR03269

PATIENT
  Age: 18 Year
  Sex: Female
  Weight: 14 kg

DRUGS (1)
  1. HYOSCINE HBR HYT [Suspect]
     Indication: INCREASED BRONCHIAL SECRETION
     Dosage: 1/3 PATCH EVERY 3 DAYS; TRANSDERMAL
     Route: 062
     Dates: start: 20080501

REACTIONS (8)
  - APPLICATION SITE DISCHARGE [None]
  - APPLICATION SITE ERYTHEMA [None]
  - APPLICATION SITE IRRITATION [None]
  - APPLICATION SITE REACTION [None]
  - APPLICATION SITE VESICLES [None]
  - LUNG ABSCESS [None]
  - OFF LABEL USE [None]
  - WRONG TECHNIQUE IN DRUG USAGE PROCESS [None]
